FAERS Safety Report 5963111-5 (Version None)
Quarter: 2008Q4

REPORT INFORMATION
  Report Type: 
  Country: None (occurrence: None)
  Receive Date: 20081124
  Receipt Date: 20081112
  Transmission Date: 20090506
  Serious: Yes (Life-Threatening, Other)
  Sender: FDA-Public Use
  Company Number: US-NOVOPROD-275889

PATIENT
  Age: 71 Year
  Sex: Male
  Weight: 80.726 kg

DRUGS (5)
  1. NOVOLOG [Suspect]
     Indication: TYPE 1 DIABETES MELLITUS
     Dosage: SLIDING SCALE
     Route: 058
  2. LANTUS [Suspect]
     Indication: TYPE 1 DIABETES MELLITUS
     Dosage: 18 IU, UNK
     Route: 058
  3. ALTACE [Concomitant]
     Indication: HYPERTENSION
     Route: 048
  4. FOSAMAX [Concomitant]
  5. ASPIRIN [Concomitant]
     Dosage: UNK
     Route: 048

REACTIONS (2)
  - HYPOGLYCAEMIC UNCONSCIOUSNESS [None]
  - WRONG DRUG ADMINISTERED [None]
